FAERS Safety Report 7922453 (Version 5)
Quarter: 2013Q2

REPORT INFORMATION
  Report Type: Spontaneous
  Country: US (occurrence: US)
  Receive Date: 20110429
  Receipt Date: 20130501
  Transmission Date: 20140414
  Serious: No
  Sender: FDA-Public Use
  Company Number: US-ASTRAZENECA-2011SE01070

PATIENT
  Age: 48 Year
  Sex: Female

DRUGS (1)
  1. NEXIUM [Suspect]
     Route: 048

REACTIONS (13)
  - Pain [Unknown]
  - Burning sensation [Unknown]
  - Hyperchlorhydria [Unknown]
  - Peptic ulcer [Unknown]
  - Gastrooesophageal reflux disease [Unknown]
  - Bronchitis [Unknown]
  - Chest pain [Unknown]
  - Sleep disorder due to a general medical condition [Unknown]
  - Oesophageal pain [Unknown]
  - Feeling abnormal [Unknown]
  - Regurgitation [Unknown]
  - Aphagia [Unknown]
  - Drug dose omission [Unknown]
